FAERS Safety Report 21718930 (Version 2)
Quarter: 2022Q4

REPORT INFORMATION
  Report Type: Spontaneous
  Country: TR (occurrence: TR)
  Receive Date: 20221213
  Receipt Date: 20221216
  Transmission Date: 20230112
  Serious: Yes (Other)
  Sender: FDA-Public Use
  Company Number: TR-002147023-NVSC2022TR285644

PATIENT
  Age: 5 Year
  Sex: Female

DRUGS (1)
  1. ILARIS [Suspect]
     Active Substance: CANAKINUMAB
     Indication: Familial mediterranean fever
     Dosage: UNK, QMO
     Route: 065
     Dates: start: 2019

REACTIONS (6)
  - Weight decreased [Unknown]
  - Swelling [Unknown]
  - Erythema [Unknown]
  - Hypersensitivity [Unknown]
  - Product supply issue [Unknown]
  - Off label use [Unknown]
